FAERS Safety Report 8292198-2 (Version None)
Quarter: 2012Q2

REPORT INFORMATION
  Report Type: 
  Country: None (occurrence: None)
  Receive Date: 20120412
  Receipt Date: 20120329
  Transmission Date: 20120825
  Serious: Yes (Other)
  Sender: FDA-Public Use
  Company Number: DSA_56030_2012

PATIENT
  Age: 22 Year
  Sex: Female

DRUGS (1)
  1. METRONIDAZOLE [Suspect]
     Indication: VAGINITIS BACTERIAL
     Dosage: (2 GRAMS)
     Dates: start: 20120209, end: 20120209

REACTIONS (8)
  - LISTLESS [None]
  - HEADACHE [None]
  - PYREXIA [None]
  - FALL [None]
  - MUSCULAR WEAKNESS [None]
  - ABASIA [None]
  - PERIPHERAL COLDNESS [None]
  - DIZZINESS [None]
